FAERS Safety Report 20081015 (Version 2)
Quarter: 2021Q4

REPORT INFORMATION
  Report Type: Report from Study
  Country: MX (occurrence: MX)
  Receive Date: 20211117
  Receipt Date: 20211124
  Transmission Date: 20220303
  Serious: Yes (Death, Other)
  Sender: FDA-Public Use
  Company Number: MX-NOVARTISPH-NVSC2021MX262368

PATIENT
  Age: 66 Year
  Sex: Female
  Weight: 30 kg

DRUGS (6)
  1. SANDOSTATIN [Suspect]
     Active Substance: OCTREOTIDE ACETATE
     Indication: Neuroendocrine tumour
     Dosage: 1 DF, QMO (20 MG)
     Route: 030
     Dates: start: 202103, end: 20210929
  2. SANDOSTATIN [Suspect]
     Active Substance: OCTREOTIDE ACETATE
  3. SANDOSTATIN [Suspect]
     Active Substance: OCTREOTIDE ACETATE
  4. INSULIN NOS [Concomitant]
     Active Substance: INSULIN NOS
     Indication: Diabetes mellitus
     Dosage: 7 IU, QD
     Route: 058
     Dates: start: 202109, end: 20211028
  5. JANUVIA [Concomitant]
     Active Substance: SITAGLIPTIN PHOSPHATE
     Indication: Diabetes mellitus
     Dosage: 1 DF, QD (1 OF 50 MG) (START DATE: 3 YEARS AGO)
     Route: 048
     Dates: end: 202109
  6. ORNITHINE ASPARTATE [Concomitant]
     Active Substance: ORNITHINE ASPARTATE
     Indication: Diabetic encephalopathy
     Dosage: 3 G, QD (1 ENVEL(OPE)OF 3 G)
     Route: 048
     Dates: start: 202101, end: 20211026

REACTIONS (4)
  - Pancreatic carcinoma [Fatal]
  - Second primary malignancy [Fatal]
  - Multiple organ dysfunction syndrome [Fatal]
  - Adrenal insufficiency [Not Recovered/Not Resolved]

NARRATIVE: CASE EVENT DATE: 20211027
